APPROVED DRUG PRODUCT: DOXAZOSIN MESYLATE
Active Ingredient: DOXAZOSIN MESYLATE
Strength: EQ 8MG BASE
Dosage Form/Route: TABLET;ORAL
Application: A212727 | Product #004 | TE Code: AB
Applicant: RISING PHARMA HOLDINGS INC
Approved: Mar 15, 2022 | RLD: No | RS: No | Type: RX